FAERS Safety Report 5074080-7 (Version None)
Quarter: 2006Q3

REPORT INFORMATION
  Report Type: 
  Country: None (occurrence: None)
  Receive Date: 20060808
  Receipt Date: 20060327
  Transmission Date: 20061208
  Serious: No
  Sender: FDA-Public Use
  Company Number: US-AMGEN-US174025

PATIENT
  Sex: Male
  Weight: 63.2 kg

DRUGS (8)
  1. EPOGEN [Suspect]
     Indication: DIALYSIS
     Route: 042
  2. ISOBIDE [Concomitant]
  3. LIPITOR [Concomitant]
  4. NEPHRO-VITE [Concomitant]
  5. NORVASC [Concomitant]
  6. QUININE SULFATE [Concomitant]
  7. HECTORAL [Concomitant]
  8. ECOTRIN [Concomitant]

REACTIONS (1)
  - THERAPEUTIC RESPONSE DECREASED [None]
